FAERS Safety Report 6419569-0 (Version None)
Quarter: 2009Q4

REPORT INFORMATION
  Report Type: 
  Country: None (occurrence: None)
  Receive Date: 20091029
  Receipt Date: 20091027
  Transmission Date: 20100525
  Serious: Yes (Other)
  Sender: FDA-Public Use
  Company Number: US-B.I. PHARMACEUTICALS,INC./RIDGEFIELD-2009-BP-10973BP

PATIENT
  Age: 90 Year
  Sex: Male

DRUGS (10)
  1. CATAPRES-TTS-1 [Suspect]
     Indication: HYPERTENSION
     Dosage: 0.1 MG
     Route: 061
     Dates: start: 20090301
  2. DIOVAN [Concomitant]
     Indication: HYPERTENSION
  3. LASIX [Concomitant]
     Indication: HYPERTENSION
  4. POTASSIUM CHLORIDE [Concomitant]
     Indication: HYPERTENSION
  5. ASPIRIN [Concomitant]
     Dosage: 81 MG
  6. METOPROLOL [Concomitant]
     Dosage: 50 MG
  7. SODIUM CHLORIDE [Concomitant]
     Dosage: 1 G
  8. STOOL SOFTENER [Concomitant]
  9. CELEBREX [Concomitant]
     Dosage: 200 MG
  10. TYLENOL [Concomitant]

REACTIONS (4)
  - APPLICATION SITE DISCHARGE [None]
  - APPLICATION SITE PRURITUS [None]
  - APPLICATION SITE RASH [None]
  - BLOOD PRESSURE INCREASED [None]
